FAERS Safety Report 6035826-4 (Version None)
Quarter: 2009Q1

REPORT INFORMATION
  Report Type: 
  Country: None (occurrence: None)
  Receive Date: 20090113
  Receipt Date: 20090112
  Transmission Date: 20090719
  Serious: Yes (Hospitalization, Other)
  Sender: FDA-Public Use
  Company Number: IT-BRISTOL-MYERS SQUIBB COMPANY-14437602

PATIENT
  Age: 81 Year
  Sex: Male

DRUGS (1)
  1. COUMADIN [Suspect]
     Indication: HEART VALVE REPLACEMENT
     Route: 048
     Dates: start: 20050101, end: 20080828

REACTIONS (3)
  - CEREBRAL ISCHAEMIA [None]
  - CONFUSIONAL STATE [None]
  - HEMIPLEGIA [None]
